FAERS Safety Report 8761687 (Version 1)
Quarter: 2012Q4

REPORT INFORMATION
  Report Type: Spontaneous
  Country: US (occurrence: None)
  Receive Date: 20120830
  Receipt Date: 20120830
  Transmission Date: 20130627
  Serious: No
  Sender: FDA-Public Use
  Company Number: None

PATIENT
  Age: 67 Year
  Sex: Female

DRUGS (1)
  1. TRIAMCINOLONE [Suspect]
     Dosage: 3 months
     Route: 031
     Dates: start: 20120127, end: 20120814

REACTIONS (1)
  - Endophthalmitis [None]
